FAERS Safety Report 9486420 (Version 1)
Quarter: 2013Q3

REPORT INFORMATION
  Report Type: Spontaneous
  Country: US (occurrence: US)
  Receive Date: 20130829
  Receipt Date: 20130829
  Transmission Date: 20140515
  Serious: No
  Sender: FDA-Public Use
  Company Number: US-PFIZER INC-2013248625

PATIENT
  Age: 25 Year
  Sex: Female
  Weight: 79.37 kg

DRUGS (1)
  1. ADVIL PM [Suspect]
     Indication: INSOMNIA
     Dosage: 2 TABLET AS NEEDED
     Route: 048
     Dates: start: 20130819

REACTIONS (6)
  - Off label use [Unknown]
  - Feeling drunk [Unknown]
  - Hangover [Unknown]
  - Visual impairment [Unknown]
  - Nervousness [Unknown]
  - Feeling jittery [Unknown]
